FAERS Safety Report 5088657-6 (Version None)
Quarter: 2006Q3

REPORT INFORMATION
  Report Type: 
  Country: None (occurrence: None)
  Receive Date: 20060822
  Receipt Date: 20060808
  Transmission Date: 20061208
  Serious: Yes (Death)
  Sender: FDA-Public Use
  Company Number: 2006S1007514

PATIENT
  Age: 28 Year
  Sex: Male

DRUGS (2)
  1. FENTANYL TRANSDERMAL SYSTEM [Suspect]
     Dates: end: 20060101
  2. ALPRAZOLAM [Suspect]
     Dates: end: 20060101

REACTIONS (3)
  - ACCIDENTAL OVERDOSE [None]
  - DRUG TOXICITY [None]
  - SELF-MEDICATION [None]
